FAERS Safety Report 20221315 (Version 1)
Quarter: 2021Q4

REPORT INFORMATION
  Report Type: Spontaneous
  Country: FR (occurrence: FR)
  Receive Date: 20211223
  Receipt Date: 20211223
  Transmission Date: 20220304
  Serious: Yes (Other)
  Sender: FDA-Public Use
  Company Number: FR-SA-SAC20211101000611

PATIENT

DRUGS (1)
  1. MYOZYME [Suspect]
     Active Substance: ALGLUCOSIDASE ALFA
     Indication: Glycogen storage disease type II
     Dosage: 20 MG/KG, QW
     Route: 065
     Dates: start: 201909, end: 202006

REACTIONS (5)
  - Respiratory failure [Unknown]
  - Hypertrophic cardiomyopathy [Unknown]
  - Motor dysfunction [Unknown]
  - Kyphosis [Unknown]
  - Off label use [Unknown]
